FAERS Safety Report 24390832 (Version 2)
Quarter: 2025Q1

REPORT INFORMATION
  Report Type: Spontaneous
  Country: US (occurrence: US)
  Receive Date: 20241003
  Receipt Date: 20250327
  Transmission Date: 20250409
  Serious: No
  Sender: SANOFI AVENTIS
  Company Number: US-SA-2024SA277489

PATIENT
  Age: 37 Year
  Sex: Female

DRUGS (1)
  1. DUPIXENT [Suspect]
     Active Substance: DUPILUMAB
     Indication: Dermatitis atopic
     Dosage: 300 MG, QOW
     Route: 058

REACTIONS (8)
  - Skin fissures [Unknown]
  - Eczema [Unknown]
  - Pruritus [Unknown]
  - Dry skin [Unknown]
  - Skin exfoliation [Unknown]
  - Injection site erythema [Unknown]
  - Injection site pruritus [Unknown]
  - Injection site warmth [Unknown]

NARRATIVE: CASE EVENT DATE: 20240901
